FAERS Safety Report 22121463 (Version 1)
Quarter: 2023Q1

REPORT INFORMATION
  Report Type: Spontaneous
  Country: FR (occurrence: FR)
  Receive Date: 20230321
  Receipt Date: 20230321
  Transmission Date: 20230418
  Serious: Yes (Death, Hospitalization)
  Sender: FDA-Public Use
  Company Number: None

PATIENT
  Age: 53 Year
  Sex: Male
  Weight: 72 kg

DRUGS (6)
  1. RISPERIDONE [Suspect]
     Active Substance: RISPERIDONE
     Indication: Psychotic disorder
     Dosage: 1 TABLET IN THE MORNING, QD
     Route: 048
     Dates: start: 20220822
  2. QUETIAPINE FUMARATE [Interacting]
     Active Substance: QUETIAPINE FUMARATE
     Indication: Psychotic disorder
     Dosage: 3 TABLET IN THE EVENING
     Route: 048
     Dates: start: 20220125
  3. ESCITALOPRAM OXALATE [Suspect]
     Active Substance: ESCITALOPRAM OXALATE
     Indication: Depression
     Dosage: 1 TABLET IN THE MORNING, QD
     Route: 048
     Dates: start: 20230125
  4. KETOCONAZOLE [Interacting]
     Active Substance: KETOCONAZOLE
     Indication: Dermatosis
     Dosage: 1 SACHET PER WEEK, ON FRIDAY, QW
     Route: 003
     Dates: start: 20230210
  5. MIRTAZAPINE [Suspect]
     Active Substance: MIRTAZAPINE
     Indication: Depression
     Dosage: 1 TAB AT BEDTIME, QD
     Route: 048
     Dates: start: 20221118
  6. PRAZEPAM [Concomitant]
     Active Substance: PRAZEPAM
     Indication: Anxiety
     Dosage: 1 TAB IN THE MORNING,1 TAB IN THE EVENING
     Route: 048
     Dates: start: 20220412

REACTIONS (2)
  - Intestinal ischaemia [Fatal]
  - Drug interaction [Unknown]

NARRATIVE: CASE EVENT DATE: 20230223
